FAERS Safety Report 6208527-7 (Version None)
Quarter: 2009Q2

REPORT INFORMATION
  Report Type: 
  Country: None (occurrence: None)
  Receive Date: 20090522
  Receipt Date: 20090226
  Transmission Date: 20091009
  Serious: No
  Sender: FDA-Public Use
  Company Number: 8043631

PATIENT
  Age: 49 Year
  Sex: Female
  Weight: 77.5 kg

DRUGS (18)
  1. CIMZIA [Suspect]
     Indication: CROHN'S DISEASE
     Dosage: 400 MG SC
     Route: 058
     Dates: start: 20081224
  2. PREDNISONE [Concomitant]
  3. PROZAC [Concomitant]
  4. RESTORIL /00393701/ [Concomitant]
  5. ZOFRAN [Concomitant]
  6. LORTAB [Concomitant]
  7. NYSTATIN [Concomitant]
  8. ASPIRIN [Concomitant]
  9. CRESTOR [Concomitant]
  10. DIFLUCAN [Concomitant]
  11. FOSAMAX [Concomitant]
  12. AMITIZIA [Concomitant]
  13. CATAPRES-TTS-2 [Concomitant]
  14. NEURONTIN [Concomitant]
  15. TRAMADOL HCL [Concomitant]
  16. DILAUDID [Concomitant]
  17. GOLYTELY /00747901/ [Concomitant]
  18. CHANTIX [Concomitant]

REACTIONS (3)
  - ALOPECIA [None]
  - ERYTHEMA [None]
  - OROPHARYNGEAL PAIN [None]
